FAERS Safety Report 16884143 (Version 1)
Quarter: 2019Q4

REPORT INFORMATION
  Report Type: Spontaneous
  Country: BG (occurrence: BG)
  Receive Date: 20191004
  Receipt Date: 20191004
  Transmission Date: 20200122
  Serious: Yes (Hospitalization)
  Sender: FDA-Public Use
  Company Number: BG-TEVA-2019-BG-1116448

PATIENT
  Age: 48 Year
  Sex: Male

DRUGS (1)
  1. CARBAMAZEPINE. [Suspect]
     Active Substance: CARBAMAZEPINE
     Route: 065

REACTIONS (6)
  - Generalised tonic-clonic seizure [Unknown]
  - Toxicity to various agents [Unknown]
  - Dysarthria [Unknown]
  - Paralysis [Unknown]
  - Psychomotor hyperactivity [Unknown]
  - Metabolic acidosis [Unknown]
